FAERS Safety Report 5753026-X (Version None)
Quarter: 2008Q2

REPORT INFORMATION
  Report Type: 
  Country: None (occurrence: None)
  Receive Date: 20080527
  Receipt Date: 20080516
  Transmission Date: 20081010
  Serious: Yes (Hospitalization)
  Sender: FDA-Public Use
  Company Number: GXKR2008GB04527

PATIENT
  Age: 88 Year
  Sex: Male

DRUGS (9)
  1. AMIODARONE HCL [Suspect]
     Indication: ATRIAL FIBRILLATION
     Dosage: 200 MG, ORAL
     Route: 048
  2. SIMVASTATIN [Suspect]
     Indication: BLOOD CHOLESTEROL INCREASED
     Dosage: 20 MG, ORAL
     Route: 048
     Dates: end: 20080429
  3. AMLODIPINE [Concomitant]
  4. ACETYLSALICYLIC ACID SRT [Concomitant]
  5. ISOSORBIDE MONONITRATE [Concomitant]
  6. LANSOPRAZOLE [Concomitant]
  7. MONTELUKAST SODIUM [Concomitant]
  8. SALBUTAMOL (SALBUTAMOL) [Concomitant]
  9. FLUTICASONE PROPIONATE W/SALMETEROL XINAFOATE (FLUTICASONE PROPIONATE, [Concomitant]

REACTIONS (2)
  - HEPATITIS ACUTE [None]
  - LOWER RESPIRATORY TRACT INFECTION [None]
